FAERS Safety Report 5852253-0 (Version None)
Quarter: 2008Q3

REPORT INFORMATION
  Report Type: 
  Country: None (occurrence: None)
  Receive Date: 20080821
  Receipt Date: 20080811
  Transmission Date: 20090109
  Serious: Yes (Death)
  Sender: FDA-Public Use
  Company Number: MX-NOVOPROD-278483

PATIENT

DRUGS (1)
  1. LEVEMIR [Suspect]
     Indication: DIABETES MELLITUS

REACTIONS (1)
  - DEATH [None]
